FAERS Safety Report 6761510-5 (Version None)
Quarter: 2010Q2

REPORT INFORMATION
  Report Type: 
  Country: None (occurrence: None)
  Receive Date: 20100607
  Receipt Date: 20100526
  Transmission Date: 20101027
  Serious: Yes (Death, Life-Threatening, Hospitalization, Other)
  Sender: FDA-Public Use
  Company Number: 2009AC000194

PATIENT
  Age: 78 Year
  Sex: Female

DRUGS (28)
  1. DIGOXIN [Suspect]
     Dates: end: 20070101
  2. DIGOXIN [Suspect]
     Indication: ATRIAL FIBRILLATION
     Dosage: 0.125 MG; M, W, F; PO
     Route: 048
     Dates: start: 20070217, end: 20070228
  3. DIGOXIN [Suspect]
     Indication: ATRIAL FIBRILLATION
     Dosage: 0.25 MG; QD; PO
     Route: 048
     Dates: start: 20070424, end: 20070510
  4. PLENDIL [Concomitant]
  5. ZOCOR [Concomitant]
  6. TOPROL-XL [Concomitant]
  7. LASIX [Concomitant]
  8. COREG [Concomitant]
  9. COUMADIN [Concomitant]
  10. HYDRALAZINE HCL [Concomitant]
  11. METOPROLOL TARTRATE [Concomitant]
  12. ASPIRIN [Concomitant]
  13. PROZAC [Concomitant]
  14. LIPITOR [Concomitant]
  15. HYDROCODONE BITARTRATE [Concomitant]
  16. TYLENOL [Concomitant]
  17. PRED-FORTE GTTS [Concomitant]
  18. COUMADIN [Concomitant]
  19. LISINOPRIL [Concomitant]
  20. HYDRALAZINE HCL [Concomitant]
  21. LASIX [Concomitant]
  22. METOPROLOL TARTRATE [Concomitant]
  23. PLENDIL [Concomitant]
  24. APRESOLINE [Concomitant]
  25. ARIMIDEX [Concomitant]
  26. DILTIAZEM [Concomitant]
  27. NORVASC [Concomitant]
  28. LORTAB [Concomitant]

REACTIONS (32)
  - ANAEMIA [None]
  - ANXIETY [None]
  - AORTIC STENOSIS [None]
  - AORTIC VALVE STENOSIS [None]
  - ASTHENIA [None]
  - ATRIAL FIBRILLATION [None]
  - BLOOD PARATHYROID HORMONE INCREASED [None]
  - BRONCHITIS [None]
  - CARDIAC FAILURE CONGESTIVE [None]
  - CARDIAC MURMUR [None]
  - CATARACT [None]
  - CEREBRAL INFARCTION [None]
  - CEREBROVASCULAR ACCIDENT [None]
  - DECREASED APPETITE [None]
  - ECONOMIC PROBLEM [None]
  - FEAR [None]
  - HYPERTENSION [None]
  - INTERMITTENT CLAUDICATION [None]
  - LEFT ATRIAL DILATATION [None]
  - LUNG INFILTRATION [None]
  - MITRAL VALVE INCOMPETENCE [None]
  - MITRAL VALVE STENOSIS [None]
  - MOBILITY DECREASED [None]
  - MULTIPLE INJURIES [None]
  - NAUSEA [None]
  - NO THERAPEUTIC RESPONSE [None]
  - PNEUMONIA [None]
  - RENAL FAILURE [None]
  - RHEUMATIC HEART DISEASE [None]
  - SURGERY [None]
  - UNRESPONSIVE TO STIMULI [None]
  - URINARY TRACT INFECTION [None]
